FAERS Safety Report 4901029-7 (Version None)
Quarter: 2006Q1

REPORT INFORMATION
  Report Type: 
  Country: None (occurrence: None)
  Receive Date: 20060201
  Receipt Date: 20060116
  Transmission Date: 20060701
  Serious: Yes (Other)
  Sender: FDA-Public Use
  Company Number: GB200601002232

PATIENT
  Age: 39 Year
  Sex: Male

DRUGS (3)
  1. HUMULIN N [Suspect]
     Indication: DIABETES MELLITUS
     Dosage: 11 IU, EACH EVENING
     Dates: start: 20060112, end: 20060113
  2. HUMALOG [Suspect]
     Indication: DIABETES MELLITUS
     Dosage: 18 IU EACH  MORNING
  3. HUMALOG [Concomitant]

REACTIONS (2)
  - CHEST PAIN [None]
  - PNEUMONIA [None]
